FAERS Safety Report 4524607-6 (Version None)
Quarter: 2005Q1

REPORT INFORMATION
  Report Type: 
  Country: None (occurrence: None)
  Receive Date: 20041117
  Receipt Date: 20040831
  Transmission Date: 20050727
  Serious: Yes (Hospitalization, Other)
  Sender: FDA-Public Use
  Company Number: US-JNJFOC-20040801837

PATIENT
  Age: 53 Year
  Sex: Male
  Weight: 92.0802 kg

DRUGS (3)
  1. LEVAQUIN [Suspect]
     Indication: BRONCHITIS
     Dosage: 500 MG, ORAL
     Route: 048
     Dates: start: 20040601, end: 20040601
  2. BENEMID [Concomitant]
  3. LEXAPRO [Concomitant]

REACTIONS (1)
  - TENDON RUPTURE [None]
